FAERS Safety Report 13984385 (Version 1)
Quarter: 2017Q3

REPORT INFORMATION
  Report Type: Spontaneous
  Country: CN (occurrence: CN)
  Receive Date: 20170918
  Receipt Date: 20170918
  Transmission Date: 20171128
  Serious: Yes (Other)
  Sender: FDA-Public Use
  Company Number: CN-BAXTER-2017BAX032166

PATIENT
  Age: 55 Year
  Sex: Male
  Weight: 70 kg

DRUGS (3)
  1. MEDIUM AND LONG CHAIN FAT EMULSION INJECTION (C8-24) [Suspect]
     Active Substance: GLYCERIN\MEDIUM-CHAIN TRIGLYCERIDES\PHOSPHOLIPID\SOYBEAN OIL
     Indication: MALNUTRITION
     Route: 041
     Dates: start: 20170725, end: 20170725
  2. FAT-SOLUBLE VITAMIN FOR INJECTION (II) [Suspect]
     Active Substance: VITAMINS
     Indication: MALNUTRITION
     Dosage: 2 VIAL
     Route: 041
     Dates: start: 20170725, end: 20170725
  3. 0.9% SODIUM CHLORIDE INJECTION [Suspect]
     Active Substance: SODIUM CHLORIDE
     Indication: IRRIGATION THERAPY
     Route: 065
     Dates: start: 20170725

REACTIONS (5)
  - Craniocerebral injury [Unknown]
  - Hypertension [Unknown]
  - Chills [Recovering/Resolving]
  - Condition aggravated [Unknown]
  - Pyrexia [Recovering/Resolving]

NARRATIVE: CASE EVENT DATE: 20170725
